FAERS Safety Report 8471147-8 (Version None)
Quarter: 2012Q2

REPORT INFORMATION
  Report Type: 
  Country: None (occurrence: None)
  Receive Date: 20120621
  Receipt Date: 20120608
  Transmission Date: 20120825
  Serious: Yes (Death)
  Sender: FDA-Public Use
  Company Number: UTC-019826

PATIENT

DRUGS (1)
  1. REMODULIN [Suspect]

REACTIONS (1)
  - DISEASE PROGRESSION [None]
